FAERS Safety Report 11519010 (Version 1)
Quarter: 2015Q3

REPORT INFORMATION
  Report Type: Spontaneous
  Country: US (occurrence: US)
  Receive Date: 20150917
  Receipt Date: 20150917
  Transmission Date: 20151125
  Serious: No
  Sender: FDA-Public Use
  Company Number: US-TARO-2014TAR00228

PATIENT
  Age: 84 Year
  Sex: Female
  Weight: 48.98 kg

DRUGS (6)
  1. ATORVASTATIN [Concomitant]
     Active Substance: ATORVASTATIN
  2. BABY ASPIRIN [Concomitant]
     Active Substance: ASPIRIN
  3. FLUOCINONIDE GEL USP 0.05% [Suspect]
     Active Substance: FLUOCINONIDE
     Indication: LICHEN PLANUS
     Dosage: UNK UNK, 2X/DAY
     Route: 048
     Dates: start: 20140715, end: 201408
  4. CLOTRIMAZOLE TOPICAL CREAM USP 1% [Concomitant]
     Active Substance: CLOTRIMAZOLE
     Indication: LICHEN PLANUS
     Route: 048
  5. ADVAIR HFA [Concomitant]
     Active Substance: FLUTICASONE PROPIONATE\SALMETEROL XINAFOATE
  6. IRBESARTAN. [Concomitant]
     Active Substance: IRBESARTAN
     Dosage: 75 MG, UNK

REACTIONS (5)
  - Cheilitis [Not Recovered/Not Resolved]
  - Off label use [Not Recovered/Not Resolved]
  - Ageusia [Not Recovered/Not Resolved]
  - Lip dry [Not Recovered/Not Resolved]
  - Oral discomfort [Not Recovered/Not Resolved]

NARRATIVE: CASE EVENT DATE: 201407
